FAERS Safety Report 22725980 (Version 3)
Quarter: 2024Q1

REPORT INFORMATION
  Report Type: Spontaneous
  Country: JP (occurrence: JP)
  Receive Date: 20230719
  Receipt Date: 20240313
  Transmission Date: 20240410
  Serious: Yes (Death, Disabling)
  Sender: FDA-Public Use
  Company Number: JP-NBI-BJ202312193

PATIENT
  Age: 79 Year
  Sex: Male
  Weight: 65.8 kg

DRUGS (2)
  1. IDARUCIZUMAB [Suspect]
     Active Substance: IDARUCIZUMAB
     Indication: Procoagulant therapy
     Route: 042
     Dates: start: 20230626, end: 20230626
  2. BISOPROLOL [Concomitant]
     Active Substance: BISOPROLOL\BISOPROLOL FUMARATE
     Indication: Product used for unknown indication
     Route: 065
     Dates: end: 20230901

REACTIONS (2)
  - Cerebral infarction [Fatal]
  - Haematemesis [Fatal]

NARRATIVE: CASE EVENT DATE: 20230628
